FAERS Safety Report 11741695 (Version 1)
Quarter: 2015Q4

REPORT INFORMATION
  Report Type: Spontaneous
  Country: US (occurrence: None)
  Receive Date: 20151113
  Receipt Date: 20151113
  Transmission Date: 20160304
  Serious: Yes (Hospitalization, Other)
  Sender: FDA-Public Use
  Company Number: None

PATIENT
  Age: 83 Year
  Sex: Female
  Weight: 81.19 kg

DRUGS (9)
  1. FASLODEX [Suspect]
     Active Substance: FULVESTRANT
     Indication: OESTROGEN RECEPTOR POSITIVE BREAST CANCER
     Route: 030
  2. ZYRTEC [Concomitant]
     Active Substance: CETIRIZINE HYDROCHLORIDE
  3. FLOVENT [Concomitant]
     Active Substance: FLUTICASONE PROPIONATE
  4. VITAMIN D [Concomitant]
     Active Substance: CHOLECALCIFEROL
  5. COREG [Concomitant]
     Active Substance: CARVEDILOL
  6. DIOVAN [Concomitant]
     Active Substance: VALSARTAN
  7. NASONEX [Concomitant]
     Active Substance: MOMETASONE FUROATE
  8. HYDROCHOROTHIAZIDE [Concomitant]
     Active Substance: HYDROCHLOROTHIAZIDE
  9. FE [Concomitant]
     Active Substance: IRON

REACTIONS (11)
  - Cough [None]
  - Paraesthesia oral [None]
  - Dyspnoea [None]
  - Blood pressure diastolic decreased [None]
  - Neuromuscular pain [None]
  - Urticaria [None]
  - Pulse pressure increased [None]
  - Neuromyopathy [None]
  - Gait disturbance [None]
  - Condition aggravated [None]
  - Headache [None]

NARRATIVE: CASE EVENT DATE: 20150909
